FAERS Safety Report 8567876-8 (Version None)
Quarter: 2012Q3

REPORT INFORMATION
  Report Type: 
  Country: None (occurrence: None)
  Receive Date: 20120803
  Receipt Date: 20120724
  Transmission Date: 20120928
  Serious: Yes (Hospitalization)
  Sender: FDA-Public Use
  Company Number: NL-PFIZER INC-2012091972

PATIENT
  Age: 48 Year
  Sex: Female
  Weight: 67 kg

DRUGS (3)
  1. CRIZOTINIB [Suspect]
     Indication: NON-SMALL CELL LUNG CANCER
     Dosage: 250 MG, 2X/DAY
     Route: 048
     Dates: start: 20110818
  2. MOVICOLON [Concomitant]
     Indication: CONSTIPATION
     Dosage: 1 DF, AS NEEDED
     Route: 048
     Dates: start: 20110801
  3. EBASTINE [Concomitant]
     Indication: HYPERSENSITIVITY
     Dosage: 10 MG, 1X/DAY
     Route: 048
     Dates: start: 20110515

REACTIONS (2)
  - PNEUMONIA [None]
  - INFECTIOUS PLEURAL EFFUSION [None]
